FAERS Safety Report 12739536 (Version 6)
Quarter: 2017Q1

REPORT INFORMATION
  Report Type: Report from Study
  Country: BR (occurrence: BR)
  Receive Date: 20160913
  Receipt Date: 20170214
  Transmission Date: 20170428
  Serious: Yes (Life-Threatening, Other)
  Sender: FDA-Public Use
  Company Number: PHHY2016BR109721

PATIENT
  Age: 47 Year
  Sex: Male
  Weight: 56 kg

DRUGS (5)
  1. SANDOSTATIN LAR DEPOT [Suspect]
     Active Substance: OCTREOTIDE ACETATE
     Indication: NEUROENDOCRINE TUMOUR
     Dosage: 30 MG, QMO
     Route: 030
     Dates: start: 20151130
  2. SANDOSTATIN LAR DEPOT [Suspect]
     Active Substance: OCTREOTIDE ACETATE
     Dosage: 30 MG, QMO
     Route: 030
  3. CODEINE [Concomitant]
     Active Substance: CODEINE
     Indication: PAIN
     Dosage: 2 DF, QD
     Route: 048
     Dates: start: 2015
  4. FUROSEMIDE. [Concomitant]
     Active Substance: FUROSEMIDE
     Indication: HYPERTENSION
     Dosage: 2 DF, QD
     Route: 048
     Dates: start: 2015
  5. SANDOSTATIN LAR DEPOT [Suspect]
     Active Substance: OCTREOTIDE ACETATE
     Indication: HEPATIC CANCER
     Dosage: 20 MG, QMO
     Route: 030
     Dates: start: 201512

REACTIONS (16)
  - Depression [Unknown]
  - Asthenia [Unknown]
  - Abasia [Unknown]
  - Skin discolouration [Unknown]
  - Weight decreased [Unknown]
  - General physical health deterioration [Unknown]
  - Concomitant disease aggravated [Not Recovered/Not Resolved]
  - Product use issue [Unknown]
  - Feeling abnormal [Unknown]
  - Psychiatric symptom [Unknown]
  - Nervousness [Recovered/Resolved]
  - Hepatic pain [Unknown]
  - Crying [Unknown]
  - Fear [Unknown]
  - Malaise [Unknown]
  - Anxiety [Unknown]

NARRATIVE: CASE EVENT DATE: 20151130
